FAERS Safety Report 5098002-8 (Version None)
Quarter: 2006Q3

REPORT INFORMATION
  Report Type: 
  Country: None (occurrence: None)
  Receive Date: 20060905
  Receipt Date: 20060905
  Transmission Date: 20061208
  Serious: No
  Sender: FDA-Public Use
  Company Number: None

PATIENT

DRUGS (6)
  1. CAPECITABINE [Suspect]
     Indication: COLON CANCER METASTATIC
     Dosage: 1000 MG BID PO
     Route: 048
     Dates: start: 20060612, end: 20060620
  2. OXALIPLATIN [Concomitant]
  3. ALTACE [Concomitant]
  4. AVASTIN [Concomitant]
  5. LOPRESSOR [Concomitant]
  6. IMODIUM [Concomitant]

REACTIONS (1)
  - DIARRHOEA [None]
